FAERS Safety Report 10286363 (Version 2)
Quarter: 2014Q3

REPORT INFORMATION
  Report Type: Spontaneous
  Country: FR (occurrence: FR)
  Receive Date: 20140709
  Receipt Date: 20140922
  Transmission Date: 20150326
  Serious: Yes (Life-Threatening)
  Sender: FDA-Public Use
  Company Number: FR-SA-2014SA085585

PATIENT
  Age: 74 Year
  Sex: Male

DRUGS (10)
  1. ESIDREX [Concomitant]
     Active Substance: HYDROCHLOROTHIAZIDE
     Indication: HYPERTENSION
     Dosage: STRENGTH:  25 MG: ?IN THE MORNING
     Route: 048
  2. LERCAN [Concomitant]
     Active Substance: LERCANIDIPINE
     Indication: HYPERTENSION
     Dosage: STRENGTH: 10 MG?IN EVENING
     Route: 048
  3. TAMSULOSIN HYDROCHLORIDE. [Concomitant]
     Active Substance: TAMSULOSIN HYDROCHLORIDE
     Indication: HYPERTENSION
     Dosage: STRENGTH: 0.4 MG?IN THE EVENING
     Route: 048
  4. PLAVIX [Suspect]
     Active Substance: CLOPIDOGREL BISULFATE
     Indication: PERIPHERAL ARTERY STENT INSERTION
     Dosage: IN MORNING
     Route: 048
     Dates: end: 20140528
  5. LANTUS [Concomitant]
     Active Substance: INSULIN GLARGINE
     Indication: TYPE 2 DIABETES MELLITUS
     Route: 058
  6. HUMALOG [Concomitant]
     Active Substance: INSULIN LISPRO
     Indication: TYPE 2 DIABETES MELLITUS
     Dosage: 3 UNITS IN MORNING AND 4 UNITS IN THE EVENING
     Route: 058
  7. MIRTAZAPINE. [Concomitant]
     Active Substance: MIRTAZAPINE
     Dosage: STRENGTH: 15 MG?IN THE EVENING
     Route: 048
  8. KARDEGIC [Suspect]
     Active Substance: ASPIRIN LYSINE
     Indication: PERIPHERAL ARTERY STENT INSERTION
     Route: 048
     Dates: end: 20140528
  9. GLUCOPHAGE [Concomitant]
     Active Substance: METFORMIN HYDROCHLORIDE
     Indication: TYPE 2 DIABETES MELLITUS
     Dosage: STRENGTH: 500 MG?1 TABLET IN THE MORNING AND IN THE EVENING
     Route: 048
  10. TRIATEC [Concomitant]
     Active Substance: RAMIPRIL
     Indication: HYPERTENSION
     Dosage: STRENGTH: 5 MG?IN MORNING
     Route: 048

REACTIONS (2)
  - Cerebral haematoma [Unknown]
  - Coma [Unknown]

NARRATIVE: CASE EVENT DATE: 20140528
